FAERS Safety Report 15868235 (Version 1)
Quarter: 2019Q1

REPORT INFORMATION
  Report Type: Spontaneous
  Country: US (occurrence: US)
  Receive Date: 20190125
  Receipt Date: 20190125
  Transmission Date: 20190417
  Serious: No
  Sender: FDA-Public Use
  Company Number: None

PATIENT
  Age: 33 Year
  Sex: Female

DRUGS (4)
  1. FLUTICADONE PROPIONATE [Concomitant]
  2. ALKA-SELTZER PLUS MAXIMUM STRENGTH COUGH AND MUCUS DM [Suspect]
     Active Substance: DEXTROMETHORPHAN HYDROBROMIDE\GUAIFENESIN
     Indication: PULMONARY CONGESTION
     Dates: start: 20190124, end: 20190125
  3. ALKA-SELTZER PLUS MAXIMUM STRENGTH COUGH AND MUCUS DM [Suspect]
     Active Substance: DEXTROMETHORPHAN HYDROBROMIDE\GUAIFENESIN
     Indication: SECRETION DISCHARGE
     Dates: start: 20190124, end: 20190125
  4. ALLEGRA [Concomitant]
     Active Substance: FEXOFENADINE HYDROCHLORIDE

REACTIONS (6)
  - Dizziness [None]
  - Somnolence [None]
  - Influenza like illness [None]
  - Headache [None]
  - Pain [None]
  - Abdominal pain upper [None]

NARRATIVE: CASE EVENT DATE: 20190124
